FAERS Safety Report 22698306 (Version 10)
Quarter: 2023Q4

REPORT INFORMATION
  Report Type: Report from Study
  Country: MX (occurrence: MX)
  Receive Date: 20230712
  Receipt Date: 20231213
  Transmission Date: 20240110
  Serious: Yes (Other)
  Sender: FDA-Public Use
  Company Number: MX-002147023-NVSC2023MX150214

PATIENT
  Sex: Female
  Weight: 70 kg

DRUGS (1)
  1. KISQALI [Suspect]
     Active Substance: RIBOCICLIB
     Indication: Breast cancer
     Dosage: 600 MG, QD/EVERY 24 HOURS FOR 21 DAYS AND RESTS 1 WEEK AND 1 MORE WEEK
     Route: 048

REACTIONS (60)
  - Pulmonary embolism [Unknown]
  - Decreased immune responsiveness [Unknown]
  - Gastrointestinal disorder [Unknown]
  - Epigastric discomfort [Unknown]
  - Blood cholesterol increased [Unknown]
  - Fatigue [Unknown]
  - Decreased appetite [Unknown]
  - Abdominal discomfort [Unknown]
  - Fall [Unknown]
  - Pain [Unknown]
  - Nausea [Unknown]
  - Blood glucose increased [Unknown]
  - Red blood cell count decreased [Unknown]
  - Disorientation [Unknown]
  - Discomfort [Unknown]
  - White blood cell count decreased [Unknown]
  - Distractibility [Unknown]
  - Anaemia [Unknown]
  - Sleep disorder [Unknown]
  - Inflammation [Unknown]
  - Spinal disorder [Unknown]
  - Pain in extremity [Unknown]
  - Joint injury [Unknown]
  - Nervousness [Unknown]
  - Tremor [Unknown]
  - Food aversion [Unknown]
  - Diarrhoea [Unknown]
  - Bronchitis [Unknown]
  - Cough [Unknown]
  - Productive cough [Unknown]
  - Secretion discharge [Unknown]
  - Arthralgia [Unknown]
  - Peripheral swelling [Unknown]
  - Burning sensation [Unknown]
  - Exostosis [Unknown]
  - Flatulence [Unknown]
  - Malaise [Unknown]
  - Restless legs syndrome [Unknown]
  - Off label use [Unknown]
  - Head injury [Recovering/Resolving]
  - Musculoskeletal discomfort [Unknown]
  - Tension [Recovering/Resolving]
  - Dysuria [Unknown]
  - Pollakiuria [Unknown]
  - Muscle spasms [Unknown]
  - Renal pain [Unknown]
  - Bladder discomfort [Unknown]
  - Emotional distress [Unknown]
  - Weight decreased [Unknown]
  - Dyspepsia [Unknown]
  - Throat irritation [Unknown]
  - Chest pain [Unknown]
  - Chest discomfort [Recovering/Resolving]
  - Musculoskeletal disorder [Recovering/Resolving]
  - Anxiety [Unknown]
  - Eating disorder [Unknown]
  - Pain of skin [Unknown]
  - Bone pain [Unknown]
  - Fibromyalgia [Unknown]
  - Anger [Unknown]
